FAERS Safety Report 9181365 (Version 1)
Quarter: 2013Q1

REPORT INFORMATION
  Report Type: Spontaneous
  Country: FR (occurrence: FR)
  Receive Date: 20130322
  Receipt Date: 20130322
  Transmission Date: 20140127
  Serious: Yes (Other)
  Sender: FDA-Public Use
  Company Number: FR-ASTELLAS-2013EU002655

PATIENT
  Age: 59 Year
  Sex: Male

DRUGS (1)
  1. PROGRAF [Suspect]
     Indication: RENAL TRANSPLANT
     Dosage: 5.5 MG, UNKNOWN/D
     Route: 065
     Dates: end: 201302

REACTIONS (2)
  - Renal failure [Unknown]
  - Drug intolerance [Unknown]
